FAERS Safety Report 10993845 (Version 1)
Quarter: 2015Q2

REPORT INFORMATION
  Report Type: Report from Study
  Country: JP (occurrence: None)
  Receive Date: 20150403
  Receipt Date: 20150403
  Transmission Date: 20150821
  Serious: Yes (Life-Threatening)
  Sender: FDA-Public Use
  Company Number: 2015-10976

PATIENT
  Age: 80 Year
  Sex: Female
  Weight: 55 kg

DRUGS (6)
  1. CRAVIT (LEVOFLOXACIN) EYE DROPS, 0.5% [Concomitant]
     Active Substance: LEVOFLOXACIN
  2. DROSYN-T (PHENYLEPHRINE HYDROCHLORIDE, TROPICAMIDE) [Concomitant]
  3. EYLEA [Suspect]
     Active Substance: AFLIBERCEPT
     Indication: AGE-RELATED MACULAR DEGENERATION
     Route: 031
     Dates: start: 20130610
  4. BENOXIL (OXYBUPROCAINE HYDROCHLORIDE) [Concomitant]
  5. EYLEA [Suspect]
     Active Substance: AFLIBERCEPT
     Indication: CHOROIDAL NEOVASCULARISATION
     Route: 031
     Dates: start: 20130610
  6. PROVIDINE-IODINE [Concomitant]

REACTIONS (2)
  - Peripheral nerve palsy [None]
  - Paralysis [None]

NARRATIVE: CASE EVENT DATE: 20130612
